FAERS Safety Report 18262053 (Version 3)
Quarter: 2020Q4

REPORT INFORMATION
  Report Type: Report from Study
  Country: CA (occurrence: CA)
  Receive Date: 20200914
  Receipt Date: 20201211
  Transmission Date: 20210113
  Serious: Yes (Other)
  Sender: FDA-Public Use
  Company Number: CA-JNJFOC-20200710006

PATIENT
  Age: 58 Year
  Sex: Male
  Weight: 94 kg

DRUGS (2)
  1. STELARA [Suspect]
     Active Substance: USTEKINUMAB
     Indication: PSORIASIS
     Route: 058
     Dates: start: 2020, end: 20201205
  2. STELARA [Suspect]
     Active Substance: USTEKINUMAB
     Indication: CROHN^S DISEASE
     Dosage: LAST STELARA INJECTION ON 09-JUL-2020. THE NEXT ONE DUE ON 03-SEP-2020.?RECEIVED 4TH USTEKINUMAB INJ
     Route: 058
     Dates: start: 20200514

REACTIONS (9)
  - Crohn^s disease [Not Recovered/Not Resolved]
  - Off label use [Unknown]
  - Psoriasis [Not Recovered/Not Resolved]
  - Anal abscess [Unknown]
  - Arthralgia [Unknown]
  - Cyst [Unknown]
  - Energy increased [Unknown]
  - Anal fistula [Unknown]
  - Product use issue [Unknown]

NARRATIVE: CASE EVENT DATE: 2020
